FAERS Safety Report 7058493 (Version 2)
Quarter: 2014Q2

REPORT INFORMATION
  Report Type: Report from Study
  Country: US (occurrence: US)
  Receive Date: 20090722
  Receipt Date: 20140411
  Transmission Date: 20141212
  Serious: Yes (Hospitalization, Other)
  Sender: FDA-Public Use
  Company Number: US-BRISTOL-MYERS SQUIBB COMPANY-14555874

PATIENT
  Age: 61 Year
  Sex: Male
  Weight: 62.6 kg

DRUGS (3)
  1. ERBITUX SOLN FOR INF [Suspect]
     Indication: OESOPHAGEAL SQUAMOUS CELL CARCINOMA
     Dosage: INFUSION DISCONTINUED AFTER 24.4 ML
     Dates: start: 20090317, end: 20090317
  2. CISPLATIN [Suspect]
     Indication: OESOPHAGEAL SQUAMOUS CELL CARCINOMA
     Dosage: ALSO TAKEN ON 24MAR09
     Dates: start: 20090318, end: 20090318
  3. TAXOL [Suspect]
     Indication: OESOPHAGEAL SQUAMOUS CELL CARCINOMA
     Dosage: ALSO TAKEN ON 24MAR09
     Dates: start: 20090318, end: 20090318

REACTIONS (6)
  - Anaphylactic reaction [Recovered/Resolved]
  - Chills [Unknown]
  - Dyspnoea [Unknown]
  - Hypotension [Unknown]
  - Chest pain [Recovered/Resolved]
  - Hypophosphataemia [Recovered/Resolved]
